FAERS Safety Report 10025960 (Version 1)
Quarter: 2014Q1

REPORT INFORMATION
  Report Type: Spontaneous
  Country: US (occurrence: US)
  Receive Date: 20140320
  Receipt Date: 20140320
  Transmission Date: 20141002
  Serious: No
  Sender: FDA-Public Use
  Company Number: US-B.I. PHARMACEUTICALS,INC./RIDGEFIELD-2014-BI-10657BP

PATIENT
  Age: 71 Year
  Sex: Female
  Weight: 79 kg

DRUGS (6)
  1. SPIRIVA [Suspect]
     Indication: COUGH
     Dosage: 18 MCG
     Route: 055
     Dates: start: 20140224
  2. HCTZ [Concomitant]
     Route: 065
     Dates: start: 1994
  3. PRAVASTATIN [Concomitant]
     Indication: BLOOD CHOLESTEROL ABNORMAL
     Route: 065
     Dates: start: 1999
  4. LEXAPRO [Concomitant]
     Indication: ANXIETY
     Route: 065
     Dates: start: 2013
  5. LEXAPRO [Concomitant]
     Indication: STRESS
  6. ATENOLOL [Concomitant]
     Route: 065
     Dates: start: 1994

REACTIONS (3)
  - Pruritus [Not Recovered/Not Resolved]
  - Drug ineffective for unapproved indication [Not Recovered/Not Resolved]
  - Off label use [Not Recovered/Not Resolved]
